FAERS Safety Report 9259611 (Version 2)
Quarter: 2014Q1

REPORT INFORMATION
  Report Type: Spontaneous
  Country: US (occurrence: US)
  Receive Date: 20130429
  Receipt Date: 20140324
  Transmission Date: 20141002
  Serious: Yes (Other)
  Sender: FDA-Public Use
  Company Number: US-ROCHE-1218150

PATIENT
  Age: 24 Year
  Sex: Female

DRUGS (1)
  1. ACCUTANE [Suspect]
     Indication: ACNE
     Route: 065
     Dates: start: 20061018, end: 2007

REACTIONS (5)
  - Colitis [Unknown]
  - Injury [Unknown]
  - Dry skin [Unknown]
  - Blood cholesterol increased [Unknown]
  - Dry skin [Unknown]
